FAERS Safety Report 22126841 (Version 1)
Quarter: 2023Q1

REPORT INFORMATION
  Report Type: Spontaneous
  Country: US (occurrence: US)
  Receive Date: 20230322
  Receipt Date: 20230322
  Transmission Date: 20230417
  Serious: Yes (Other)
  Sender: FDA-Public Use
  Company Number: US-FreseniusKabi-FK202303710

PATIENT
  Age: 40 Year
  Sex: Female

DRUGS (2)
  1. ARSENIC TRIOXIDE [Suspect]
     Active Substance: ARSENIC TRIOXIDE
     Indication: Acute promyelocytic leukaemia
     Dosage: PATIENT WAS GIVEN TWO CYCLE OF ATRA/ATO
  2. TRETINOIN [Suspect]
     Active Substance: TRETINOIN
     Indication: Acute promyelocytic leukaemia
     Dosage: PATIENT WAS GIVEN TWO CYCLE OF ATRA/ATO

REACTIONS (2)
  - Pericarditis [Recovered/Resolved]
  - Differentiation syndrome [Unknown]
